FAERS Safety Report 26127949 (Version 1)
Quarter: 2025Q4

REPORT INFORMATION
  Report Type: Spontaneous
  Country: EU (occurrence: EU)
  Receive Date: 20251206
  Receipt Date: 20251206
  Transmission Date: 20260118
  Serious: Yes (Hospitalization, Other)
  Sender: CELLTRION
  Company Number: EU-AMGEN-CZESP2025229928

PATIENT

DRUGS (8)
  1. ADALIMUMAB [Suspect]
     Active Substance: ADALIMUMAB
     Indication: Uveitis
     Dosage: UNK (DOSAGE1: UNIT=NOT AVAILABLE)
     Route: 065
  2. ADALIMUMAB [Suspect]
     Active Substance: ADALIMUMAB
  3. INFLIXIMAB [Suspect]
     Active Substance: INFLIXIMAB
     Indication: Uveitis
     Dosage: UNK
  4. METHOTREXATE [Concomitant]
     Active Substance: METHOTREXATE
     Indication: Uveitis
     Dosage: UNK
  5. MYCOPHENOLATE MOFETIL [Concomitant]
     Active Substance: MYCOPHENOLATE MOFETIL
     Indication: Uveitis
     Dosage: UNK
  6. ANAKINRA [Concomitant]
     Active Substance: ANAKINRA
     Indication: Uveitis
     Dosage: UNK
  7. ABATACEPT [Concomitant]
     Active Substance: ABATACEPT
     Indication: Uveitis
     Dosage: UNK
  8. TOCILIZUMAB [Concomitant]
     Active Substance: TOCILIZUMAB
     Indication: Uveitis
     Dosage: UNK

REACTIONS (4)
  - Glaucoma [Unknown]
  - Cataract [Unknown]
  - Uveitis [Unknown]
  - Blau syndrome [Unknown]
